FAERS Safety Report 23398898 (Version 1)
Quarter: 2024Q1

REPORT INFORMATION
  Report Type: Spontaneous
  Country: ES (occurrence: ES)
  Receive Date: 20240112
  Receipt Date: 20240112
  Transmission Date: 20240410
  Serious: Yes (Other)
  Sender: FDA-Public Use
  Company Number: ES-ANIPHARMA-2024-ES-000003

PATIENT
  Age: 58 Year
  Sex: Male

DRUGS (5)
  1. CANDESARTAN CILEXETIL AND HYDROCHLOROTHIAZIDE [Suspect]
     Active Substance: CANDESARTAN CILEXETIL\HYDROCHLOROTHIAZIDE
     Indication: Hypertension
     Dosage: DOSE TEXT: 32/12.5 MG, 1 DF EVERY 24 HOUR / DOSE TEXT: 32/25 MG , 1 DF EVERY 24 HOUR / DOSE TEXT: IN
     Route: 048
     Dates: start: 20230217, end: 20230717
  2. ASPIRIN [Concomitant]
     Active Substance: ASPIRIN
     Dosage: 1 DF Q1H
     Route: 048
     Dates: start: 20140624
  3. ALLOPURINOL [Concomitant]
     Active Substance: ALLOPURINOL
     Dosage: 1 DF Q1H
     Route: 048
     Dates: start: 20220512
  4. PANTOPRAZOLE [Concomitant]
     Active Substance: PANTOPRAZOLE
     Dosage: 1 DF Q1H
     Route: 048
     Dates: start: 20231126
  5. ATORVASTATIN [Concomitant]
     Active Substance: ATORVASTATIN
     Dosage: 1 DF Q1H
     Route: 048
     Dates: start: 20190522

REACTIONS (4)
  - Urticaria [Recovered/Resolved]
  - Pruritus [Recovered/Resolved]
  - Erythema [Recovered/Resolved]
  - Oedema [Recovering/Resolving]

NARRATIVE: CASE EVENT DATE: 20230705
